FAERS Safety Report 22164481 (Version 1)
Quarter: 2023Q2

REPORT INFORMATION
  Report Type: Other
  Country: SE (occurrence: SE)
  Receive Date: 20230403
  Receipt Date: 20230403
  Transmission Date: 20230721
  Serious: Yes (Life-Threatening, Hospitalization, Other)
  Sender: FDA-Public Use
  Company Number: SE-DENTSPLY-2023SCDP000093

PATIENT
  Age: 51 Year
  Sex: Female

DRUGS (3)
  1. EPINEPHRINE\PRILOCAINE [Suspect]
     Active Substance: EPINEPHRINE\PRILOCAINE
     Indication: Tooth extraction
     Dosage: UNK (2 AMPOULES)
     Dates: start: 20230222, end: 20230222
  2. EPINEPHRINE BITARTRATE\LIDOCAINE HYDROCHLORIDE [Suspect]
     Active Substance: EPINEPHRINE BITARTRATE\LIDOCAINE HYDROCHLORIDE
     Indication: Tooth extraction
     Dosage: UNK  20 MG/ML + 12.5 MICROGRAMS/ML (2 AMPOULES)
     Dates: start: 20230222, end: 20230222
  3. ARTICAINE HYDROCHLORIDE AND EPINEPHRINE [Suspect]
     Active Substance: ARTICAINE HYDROCHLORIDE\EPINEPHRINE BITARTRATE
     Indication: Periodontitis
     Dosage: UNK SEPTOCAINE FORTE 40 MG/ML + 10 MICROGRAMS/ML SOLUTION FOR INJECTION ( 4 AMPOULES)
     Dates: start: 20230222, end: 20230222

REACTIONS (4)
  - Pallor [Recovered/Resolved]
  - Skin discolouration [Recovered/Resolved]
  - Dyspnoea [Recovered/Resolved]
  - Epilepsy [Recovered/Resolved]

NARRATIVE: CASE EVENT DATE: 20230222
